FAERS Safety Report 5629483-6 (Version None)
Quarter: 2008Q1

REPORT INFORMATION
  Report Type: 
  Country: None (occurrence: None)
  Receive Date: 20080216
  Receipt Date: 20080216
  Transmission Date: 20080703
  Serious: Yes (Hospitalization)
  Sender: FDA-Public Use
  Company Number: None

PATIENT
  Age: 85 Year
  Sex: Male
  Weight: 76.6579 kg

DRUGS (1)
  1. VALPROIC ACID [Suspect]
     Indication: CONVULSION
     Dosage: 1500MG QHS PO
     Route: 048
     Dates: start: 20060915, end: 20071203

REACTIONS (3)
  - CEREBROVASCULAR ACCIDENT [None]
  - CONVULSION [None]
  - UNRESPONSIVE TO STIMULI [None]
